FAERS Safety Report 8178764 (Version 9)
Quarter: 2012Q4

REPORT INFORMATION
  Report Type: Report from Study
  Country: BE (occurrence: BE)
  Receive Date: 20111013
  Receipt Date: 20121207
  Transmission Date: 20130627
  Serious: Yes (Hospitalization)
  Sender: FDA-Public Use
  Company Number: PHHO2011BE16647

PATIENT

DRUGS (9)
  1. EVEROLIMUS [Suspect]
     Indication: RENAL TRANSPLANT
     Dosage: 3 mg, QD
     Route: 048
     Dates: start: 20091205, end: 20110923
  2. NEORAL [Suspect]
     Indication: RENAL TRANSPLANT
     Dosage: 50 mg, BID
  3. MYFORTIC [Suspect]
     Indication: RENAL TRANSPLANT
     Dosage: 720 mg, QD
     Route: 048
     Dates: start: 20091216
  4. PREDNISOLONE [Suspect]
     Indication: RENAL TRANSPLANT
     Dosage: 4 mg, QD
     Route: 048
     Dates: start: 20091107
  5. OLMESARTAN [Concomitant]
  6. BUMETANIDE [Concomitant]
  7. SULFAMETHOXAZOLE W/TRIMETHOPRIM [Concomitant]
  8. GLURENORM [Concomitant]
  9. INSULATARD [Concomitant]

REACTIONS (5)
  - Deep vein thrombosis [Recovering/Resolving]
  - Diabetes mellitus [Recovering/Resolving]
  - Anaemia [Recovered/Resolved]
  - Interstitial lung disease [Recovering/Resolving]
  - Blood creatinine increased [Recovering/Resolving]
